FAERS Safety Report 6202735-7 (Version None)
Quarter: 2009Q2

REPORT INFORMATION
  Report Type: 
  Country: None (occurrence: None)
  Receive Date: 20090526
  Receipt Date: 20090520
  Transmission Date: 20091009
  Serious: Yes (Death)
  Sender: FDA-Public Use
  Company Number: PHHY2009UY19612

PATIENT
  Sex: Female

DRUGS (1)
  1. PAMIDRONATE DISODIUM [Suspect]

REACTIONS (1)
  - BREAST CANCER [None]
